FAERS Safety Report 5269014-6 (Version None)
Quarter: 2007Q1

REPORT INFORMATION
  Report Type: 
  Country: None (occurrence: None)
  Receive Date: 20061212
  Receipt Date: 20050906
  Transmission Date: 20070707
  Serious: Yes (Other)
  Sender: FDA-Public Use
  Company Number: 2005UW13188

PATIENT
  Age: 61 Year
  Sex: Female

DRUGS (1)
  1. PULMICORT [Suspect]

REACTIONS (2)
  - COUGH [None]
  - DRUG ADMINISTRATION ERROR [None]
